FAERS Safety Report 10553442 (Version 1)
Quarter: 2014Q4

REPORT INFORMATION
  Report Type: Spontaneous
  Country: US (occurrence: None)
  Receive Date: 20141028
  Receipt Date: 20141028
  Transmission Date: 20150529
  Serious: Yes (Life-Threatening, Hospitalization)
  Sender: FDA-Public Use
  Company Number: None

PATIENT
  Age: 49 Year
  Sex: Male
  Weight: 189 kg

DRUGS (1)
  1. TERAZOSIN [Suspect]
     Active Substance: TERAZOSIN\TERAZOSIN HYDROCHLORIDE
     Indication: SURGERY
     Route: 048
     Dates: start: 20100822, end: 20131201

REACTIONS (1)
  - Priapism [None]

NARRATIVE: CASE EVENT DATE: 20131201
